FAERS Safety Report 15160076 (Version 2)
Quarter: 2018Q3

REPORT INFORMATION
  Report Type: Report from Study
  Country: MX (occurrence: MX)
  Receive Date: 20180718
  Receipt Date: 20180731
  Transmission Date: 20181010
  Serious: Yes (Hospitalization, Other)
  Sender: FDA-Public Use
  Company Number: PHHY2018MX034781

PATIENT
  Age: 50 Year
  Sex: Male

DRUGS (4)
  1. EXFORGE HCT [Suspect]
     Active Substance: AMLODIPINE BESYLATE\HYDROCHLOROTHIAZIDE\VALSARTAN
     Indication: BLOOD PRESSURE INCREASED
     Dosage: 2 DF, QD (5 MG AMLODIPINE, 12.5 MG HYDROCHLOROTHIAZIDE AND 160 MG VALSARTAN)
     Route: 048
     Dates: start: 201806
  2. JANUMET [Concomitant]
     Active Substance: METFORMIN HYDROCHLORIDE\SITAGLIPTIN PHOSPHATE
     Indication: DIABETES MELLITUS
     Dosage: 2 DF, QD (1 IN THE MORNING AND 1 IN THE NIGHT) (APPROXIMATELY 2 YEARS AGO)
     Route: 065
  3. CO?DIOVAN [Suspect]
     Active Substance: HYDROCHLOROTHIAZIDE\VALSARTAN
     Indication: BLOOD PRESSURE INCREASED
     Dosage: 2 DF, (HYDROCHLOROTHIAZIDE 12.5MG, VALSARTAN 160MG), QD (APPROXIMATELY 2 YEARS AGO)
     Route: 048
     Dates: end: 201806
  4. TRAVATAN [Suspect]
     Active Substance: TRAVOPROST
     Indication: INTRAOCULAR PRESSURE INCREASED
     Dosage: 1 DRP, QD
     Route: 048
     Dates: start: 201806

REACTIONS (8)
  - Eye disorder [Unknown]
  - Hypertensive crisis [Unknown]
  - Drug ineffective [Recovering/Resolving]
  - Inappropriate schedule of drug administration [Unknown]
  - Glaucoma [Unknown]
  - Drug prescribing error [Unknown]
  - Vision blurred [Recovering/Resolving]
  - Intraocular pressure test abnormal [Unknown]

NARRATIVE: CASE EVENT DATE: 201806
